FAERS Safety Report 8258745-1 (Version None)
Quarter: 2012Q2

REPORT INFORMATION
  Report Type: 
  Country: None (occurrence: None)
  Receive Date: 20120404
  Receipt Date: 20120404
  Transmission Date: 20120825
  Serious: Yes (Other)
  Sender: FDA-Public Use
  Company Number: None

PATIENT
  Sex: Female
  Weight: 67.131 kg

DRUGS (1)
  1. ATELVIA [Suspect]
     Indication: BONE DISORDER
     Route: 048
     Dates: start: 20120312, end: 20120312

REACTIONS (7)
  - MYALGIA [None]
  - ARTHRALGIA [None]
  - ABDOMINAL PAIN UPPER [None]
  - GAIT DISTURBANCE [None]
  - BALANCE DISORDER [None]
  - PAIN IN EXTREMITY [None]
  - DYSPEPSIA [None]
